FAERS Safety Report 9320356 (Version 1)
Quarter: 2013Q2

REPORT INFORMATION
  Report Type: Spontaneous
  Country: US (occurrence: US)
  Receive Date: 20130530
  Receipt Date: 20130530
  Transmission Date: 20140414
  Serious: Yes (Hospitalization)
  Sender: FDA-Public Use
  Company Number: US-RB-054385-13

PATIENT
  Sex: Female

DRUGS (4)
  1. SUBOXONE FILM [Suspect]
     Dosage: SUBOXONE FILM; DOSING DETAILS UNKNOWN
     Route: 065
  2. SUBOXONE FILM [Suspect]
     Dosage: SUBOXONE FILM; 1/16 MG DAILY
     Route: 065
  3. SUBOXONE FILM [Suspect]
     Indication: PRODUCT USED FOR UNKNOWN INDICATION
     Dosage: SUBOXONE FILM
     Route: 065
  4. SUBOXONE FILM [Suspect]
     Dosage: SUBOXONE FILM
     Route: 065

REACTIONS (4)
  - Underdose [Unknown]
  - Wrong technique in drug usage process [Unknown]
  - Alcohol abuse [Unknown]
  - Drug withdrawal syndrome [Unknown]
